FAERS Safety Report 10407891 (Version 3)
Quarter: 2014Q4

REPORT INFORMATION
  Report Type: Spontaneous
  Country: JP (occurrence: JP)
  Receive Date: 20140825
  Receipt Date: 20141008
  Transmission Date: 20150528
  Serious: Yes (Death, Hospitalization, Other)
  Sender: FDA-Public Use
  Company Number: JP-MPIJNJ-2013JNJ001266

PATIENT

DRUGS (7)
  1. REVLIMID [Concomitant]
     Active Substance: LENALIDOMIDE
     Indication: PLASMA CELL MYELOMA
     Dosage: UNK
     Route: 048
     Dates: start: 201303, end: 201309
  2. VELCADE [Suspect]
     Active Substance: BORTEZOMIB
     Indication: PLASMA CELL MYELOMA
     Dosage: UNK MG/M2, UNK
     Route: 058
     Dates: start: 20120318, end: 201303
  3. ENDOXAN                            /00021101/ [Concomitant]
     Active Substance: CYCLOPHOSPHAMIDE
     Indication: PLASMA CELL MYELOMA
     Dosage: 300 MG/M2, UNK
     Route: 048
     Dates: start: 20120318, end: 201303
  4. VELCADE [Suspect]
     Active Substance: BORTEZOMIB
     Dosage: 1.3 UNK, UNK
     Route: 058
     Dates: start: 20131001
  5. ADRIACIN [Concomitant]
     Active Substance: DOXORUBICIN HYDROCHLORIDE
     Indication: PLASMA CELL MYELOMA
     Dosage: 13 MG, UNK
     Dates: start: 20131001
  6. DEXAMETHASONE. [Concomitant]
     Active Substance: DEXAMETHASONE
     Dosage: 40 MG, UNK
     Route: 048
     Dates: start: 20131001
  7. DEXAMETHASONE. [Concomitant]
     Active Substance: DEXAMETHASONE
     Indication: PLASMA CELL MYELOMA
     Dosage: 20 MG, UNK
     Route: 048
     Dates: start: 20120318, end: 201309

REACTIONS (4)
  - Plasma cell myeloma [Fatal]
  - Papilloedema [Unknown]
  - Blindness unilateral [Recovering/Resolving]
  - Paraneoplastic retinopathy [Unknown]

NARRATIVE: CASE EVENT DATE: 20131125
